FAERS Safety Report 18043795 (Version 1)
Quarter: 2020Q3

REPORT INFORMATION
  Report Type: Spontaneous
  Country: ID (occurrence: ID)
  Receive Date: 20200720
  Receipt Date: 20200720
  Transmission Date: 20201103
  Serious: Yes (Other)
  Sender: FDA-Public Use
  Company Number: ID-ASTRAZENECA-2020SE88229

PATIENT
  Sex: Male

DRUGS (1)
  1. OSIMERTINIB. [Suspect]
     Active Substance: OSIMERTINIB
     Route: 048

REACTIONS (1)
  - Nephrolithiasis [Unknown]
